FAERS Safety Report 16442851 (Version 3)
Quarter: 2020Q1

REPORT INFORMATION
  Report Type: Report from Study
  Country: US (occurrence: US)
  Receive Date: 20190617
  Receipt Date: 20200331
  Transmission Date: 20200409
  Serious: Yes (Hospitalization)
  Sender: FDA-Public Use
  Company Number: US-ACTELION-A-NJ2018-180365

PATIENT
  Age: 64 Year
  Sex: Female
  Weight: 87.17 kg

DRUGS (17)
  1. OPSUMIT [Suspect]
     Active Substance: MACITENTAN
     Indication: PULMONARY HYPERTENSION
     Dosage: 10 MG, QD
     Route: 048
     Dates: start: 201808
  2. SPIRIVA [Concomitant]
     Active Substance: TIOTROPIUM BROMIDE MONOHYDRATE
     Dosage: 18 MCG, QD
     Dates: start: 2013
  3. TRAZODONE [Concomitant]
     Active Substance: TRAZODONE HYDROCHLORIDE
     Dosage: 50 MG, QD
     Dates: start: 2013
  4. GLIPIZIDE. [Concomitant]
     Active Substance: GLIPIZIDE
     Dosage: 5 MG, QD
     Dates: start: 2005
  5. PREDNISONE. [Concomitant]
     Active Substance: PREDNISONE
     Dosage: 5 MG, QD
     Dates: start: 2010
  6. BENZONATATE. [Concomitant]
     Active Substance: BENZONATATE
     Dosage: (100MG AS NEEDED 3X DAY)
     Dates: start: 2013
  7. ROSUVASTATIN. [Concomitant]
     Active Substance: ROSUVASTATIN
     Dosage: (10MG 1/2 AB AT BED TIME)
     Dates: start: 2008
  8. VITAMIN D2 [Concomitant]
     Active Substance: ERGOCALCIFEROL
     Dosage: 50000 MG, Q1WEEK
     Dates: start: 2013
  9. IMODIUM AD [Concomitant]
     Active Substance: LOPERAMIDE HYDROCHLORIDE
     Dosage: (2MG, 2-6 TABLETS AS NEEDED)
     Dates: start: 2015
  10. ADVAIR UNSPEC [Concomitant]
     Dosage: (500/50 MG 2X DAY)
     Dates: start: 2013
  11. PANTOPRAZOLE [Concomitant]
     Active Substance: PANTOPRAZOLE
     Dosage: 40 MG, BID
     Dates: start: 2016
  12. LEVOTHYROXINE. [Concomitant]
     Active Substance: LEVOTHYROXINE
     Dosage: 0.1 MG, QD
     Dates: start: 2008
  13. PROAIR HFA [Concomitant]
     Active Substance: ALBUTEROL SULFATE
     Dosage: 1 PUFF AS NEEDED UP TO 6X DAY
     Dates: start: 2008
  14. IPRATROPIUM BROMIDE AND ALBUTEROL SULFATE [Concomitant]
     Active Substance: ALBUTEROL SULFATE\IPRATROPIUM BROMIDE
     Dosage: (5MG/3MG AS NEEDED 6X DAY)
     Dates: start: 2008
  15. HYDROCHLOROTHIAZIDE. [Concomitant]
     Active Substance: HYDROCHLOROTHIAZIDE
     Dosage: (12.5MG 1/2 TAB 2X WEEK)
     Dates: start: 2013
  16. REMODULIN [Concomitant]
     Active Substance: TREPROSTINIL
     Dosage: (50MG/20 ML CONT INFUS)
     Dates: start: 2016
  17. MUCINEX [Concomitant]
     Active Substance: GUAIFENESIN
     Dosage: 400 MG, BID
     Dates: start: 201604

REACTIONS (7)
  - Diverticulitis [Recovered/Resolved]
  - Weight increased [Not Recovered/Not Resolved]
  - Fall [Unknown]
  - Chronic obstructive pulmonary disease [Recovered/Resolved]
  - Dizziness [Unknown]
  - Hospitalisation [Unknown]
  - Contusion [Unknown]

NARRATIVE: CASE EVENT DATE: 201809
